FAERS Safety Report 23428153 (Version 2)
Quarter: 2024Q1

REPORT INFORMATION
  Report Type: Spontaneous
  Country: GB (occurrence: GB)
  Receive Date: 20240122
  Receipt Date: 20240207
  Transmission Date: 20240410
  Serious: Yes (Hospitalization)
  Sender: FDA-Public Use
  Company Number: None

PATIENT
  Age: 68 Year
  Sex: Male

DRUGS (1)
  1. CIPROFLOXACIN [Suspect]
     Active Substance: CIPROFLOXACIN
     Indication: Orchitis
     Dosage: UNK
     Route: 042
     Dates: start: 20240105, end: 20240105

REACTIONS (6)
  - Medication error [Unknown]
  - Myasthenia gravis [Recovering/Resolving]
  - Fatigue [Unknown]
  - Aphasia [None]
  - Muscular weakness [None]
  - Speech disorder [Unknown]

NARRATIVE: CASE EVENT DATE: 20240105
